FAERS Safety Report 13537915 (Version 1)
Quarter: 2017Q2

REPORT INFORMATION
  Report Type: Spontaneous
  Country: US (occurrence: US)
  Receive Date: 20170511
  Receipt Date: 20170511
  Transmission Date: 20170830
  Serious: Yes (Hospitalization, Other)
  Sender: FDA-Public Use
  Company Number: US-BAXTER-2017BAX020321

PATIENT
  Sex: Female

DRUGS (8)
  1. SODIUM BICARBONATE. [Suspect]
     Active Substance: SODIUM BICARBONATE
     Indication: HAEMORRHAGE PROPHYLAXIS
  2. EPINEPHRINE 5% [Suspect]
     Active Substance: EPINEPHRINE
     Indication: POSTOPERATIVE ANALGESIA
     Dosage: IN 400 CC OF SOLUTION
     Route: 065
     Dates: start: 20140828, end: 20140828
  3. LIDOCAINE. [Suspect]
     Active Substance: LIDOCAINE
     Indication: POSTOPERATIVE ANALGESIA
     Route: 065
     Dates: start: 20140828, end: 20140828
  4. 5% SODIUM CHLORIDE INJECTION [Suspect]
     Active Substance: SODIUM CHLORIDE
     Indication: HAEMORRHAGE PROPHYLAXIS
  5. LIDOCAINE. [Suspect]
     Active Substance: LIDOCAINE
     Indication: HAEMORRHAGE PROPHYLAXIS
  6. 5% SODIUM CHLORIDE INJECTION [Suspect]
     Active Substance: SODIUM CHLORIDE
     Indication: POSTOPERATIVE ANALGESIA
     Route: 065
     Dates: start: 20140828, end: 20140828
  7. EPINEPHRINE 5% [Suspect]
     Active Substance: EPINEPHRINE
     Indication: HAEMORRHAGE PROPHYLAXIS
  8. SODIUM BICARBONATE. [Suspect]
     Active Substance: SODIUM BICARBONATE
     Indication: POSTOPERATIVE ANALGESIA
     Route: 065
     Dates: start: 20140828, end: 20140828

REACTIONS (6)
  - Impaired healing [Unknown]
  - Wound secretion [Unknown]
  - Discomfort [Unknown]
  - Wrong drug administered [Recovered/Resolved]
  - Pain [Unknown]
  - Vascular injury [Unknown]

NARRATIVE: CASE EVENT DATE: 2014
